FAERS Safety Report 24554912 (Version 1)
Quarter: 2024Q4

REPORT INFORMATION
  Report Type: Report from Study
  Country: CZ (occurrence: CZ)
  Receive Date: 20241028
  Receipt Date: 20241028
  Transmission Date: 20250115
  Serious: Yes (Death, Other)
  Sender: ABBVIE
  Company Number: CZ-ABBVIE-5976770

PATIENT
  Age: 64 Year
  Sex: Female

DRUGS (1)
  1. RINVOQ [Suspect]
     Active Substance: UPADACITINIB
     Indication: Rheumatoid arthritis
     Route: 048
     Dates: start: 20201027, end: 20240927

REACTIONS (7)
  - Septic shock [Fatal]
  - Sepsis [Unknown]
  - Pancreatitis acute [Unknown]
  - Fall [Unknown]
  - Loss of consciousness [Unknown]
  - Femur fracture [Unknown]
  - Renal failure [Unknown]

NARRATIVE: CASE EVENT DATE: 20240928
